FAERS Safety Report 11240313 (Version 1)
Quarter: 2015Q3

REPORT INFORMATION
  Report Type: Spontaneous
  Country: CA (occurrence: CA)
  Receive Date: 20150706
  Receipt Date: 20150706
  Transmission Date: 20151125
  Serious: Yes (Disabling, Other)
  Sender: FDA-Public Use
  Company Number: CA-JNJFOC-20150623484

PATIENT
  Age: 30 Year
  Sex: Male
  Weight: 100 kg

DRUGS (1)
  1. INVEGA SUSTENNA [Suspect]
     Active Substance: PALIPERIDONE PALMITATE
     Indication: PSYCHOTIC DISORDER
     Route: 051

REACTIONS (7)
  - Tachycardia [Recovered/Resolved]
  - Musculoskeletal chest pain [Recovered/Resolved]
  - Visual impairment [Recovered/Resolved]
  - Nausea [Recovered/Resolved]
  - Nervous system disorder [Recovered/Resolved]
  - Palpitations [Recovered/Resolved]
  - IIIrd nerve disorder [Recovered/Resolved]
